FAERS Safety Report 18353219 (Version 1)
Quarter: 2020Q4

REPORT INFORMATION
  Report Type: Spontaneous
  Country: US (occurrence: US)
  Receive Date: 20201006
  Receipt Date: 20201006
  Transmission Date: 20210114
  Serious: No
  Sender: FDA-Public Use
  Company Number: US-ALLERGAN-2012063US

PATIENT
  Age: 6 Decade
  Sex: Male

DRUGS (2)
  1. LINZESS [Suspect]
     Active Substance: LINACLOTIDE
     Indication: GASTROINTESTINAL DISORDER
     Dosage: 290 ?G, QD
  2. LINZESS [Suspect]
     Active Substance: LINACLOTIDE
     Indication: PELVIC DISCOMFORT

REACTIONS (4)
  - Therapeutic product effect incomplete [Unknown]
  - Intentional product misuse [Unknown]
  - Off label use [Unknown]
  - Inappropriate schedule of product administration [Unknown]
